FAERS Safety Report 5040685-2 (Version None)
Quarter: 2006Q2

REPORT INFORMATION
  Report Type: 
  Country: None (occurrence: None)
  Receive Date: 20060629
  Receipt Date: 20060629
  Transmission Date: 20061013
  Serious: Yes (Hospitalization)
  Sender: FDA-Public Use
  Company Number: None

PATIENT
  Age: 60 Year
  Sex: Male
  Weight: 44.6 kg

DRUGS (1)
  1. COUMADIN [Suspect]
     Indication: ATRIAL THROMBOSIS
     Dosage: PER CLINIC (5 MG/D)
     Dates: start: 20060117, end: 20060406

REACTIONS (4)
  - CHEST PAIN [None]
  - HAEMATOCHEZIA [None]
  - HAEMOGLOBIN DECREASED [None]
  - INTERNATIONAL NORMALISED RATIO DECREASED [None]
